FAERS Safety Report 7076343-2 (Version None)
Quarter: 2010Q4

REPORT INFORMATION
  Report Type: 
  Country: None (occurrence: None)
  Receive Date: 20101101
  Receipt Date: 20101025
  Transmission Date: 20110411
  Serious: Yes (Life-Threatening)
  Sender: FDA-Public Use
  Company Number: US-JNJFOC-20101001631

PATIENT
  Sex: Female
  Weight: 74.84 kg

DRUGS (3)
  1. LEVAQUIN [Suspect]
     Indication: GROIN ABSCESS
     Route: 048
  2. ADVAIR DISKUS 100/50 [Concomitant]
     Indication: CHRONIC OBSTRUCTIVE PULMONARY DISEASE
     Dosage: 100MCG/50MCG
     Route: 048
  3. SPIRIVA [Concomitant]
     Indication: CHRONIC OBSTRUCTIVE PULMONARY DISEASE
     Route: 048

REACTIONS (3)
  - COUGH [None]
  - PRURITUS [None]
  - THROAT TIGHTNESS [None]
